FAERS Safety Report 8437566-0 (Version None)
Quarter: 2012Q2

REPORT INFORMATION
  Report Type: 
  Country: None (occurrence: None)
  Receive Date: 20120614
  Receipt Date: 20120501
  Transmission Date: 20120825
  Serious: No
  Sender: FDA-Public Use
  Company Number: US-AMGEN-USASP2012027616

PATIENT
  Age: 64 Year
  Sex: Female

DRUGS (2)
  1. PROLIA [Suspect]
     Indication: OSTEOPOROSIS
     Dosage: UNK UNK, Q6MO
     Dates: start: 20110101
  2. ANASTROZOLE [Concomitant]
     Dosage: UNK

REACTIONS (4)
  - EPISTAXIS [None]
  - STOMATITIS [None]
  - TINNITUS [None]
  - INFLUENZA [None]
